FAERS Safety Report 8274013-6 (Version None)
Quarter: 2012Q2

REPORT INFORMATION
  Report Type: 
  Country: None (occurrence: None)
  Receive Date: 20120411
  Receipt Date: 20120402
  Transmission Date: 20120825
  Serious: Yes (Other)
  Sender: FDA-Public Use
  Company Number: US-JNJFOC-20120401888

PATIENT
  Age: 67 Year
  Sex: Female

DRUGS (3)
  1. ROLAIDS CHERRY [Suspect]
     Indication: GASTROINTESTINAL DISORDER
     Dosage: TWO TO THREE TABLETS ABOUT EVERY THREE TO FOUR HOURS
     Route: 048
  2. MYLANTA MAXIMUM STRENGTH ANTACID/ ANTIGAS LIQUID MINT [Suspect]
     Indication: GASTROINTESTINAL DISORDER
     Dosage: TWO TO FOUR TEASPOONFULS ABOUT EVERY THREE TO FOUR HOURS
     Route: 048
  3. ALTERNAGEL [Suspect]
     Indication: GASTROINTESTINAL DISORDER
     Dosage: ONE TO TWO TEASPOONFULS SEVERAL TIMES A DAY
     Route: 048

REACTIONS (2)
  - ULCER [None]
  - OVERDOSE [None]
